FAERS Safety Report 9028749 (Version 3)
Quarter: 2013Q1

REPORT INFORMATION
  Report Type: Spontaneous
  Country: US (occurrence: US)
  Receive Date: 20130124
  Receipt Date: 20130320
  Transmission Date: 20140127
  Serious: No
  Sender: FDA-Public Use
  Company Number: US-PFIZER INC-2013029023

PATIENT
  Age: 71 Year
  Sex: Female
  Weight: 59 kg

DRUGS (3)
  1. ADVIL PM [Suspect]
     Indication: PAIN
     Dosage: 200/38 MG, TWO TIMES A DAY
     Route: 048
     Dates: start: 20130117, end: 20130117
  2. ADVIL PM [Suspect]
     Indication: SLEEP DISORDER
  3. LIPITOR [Concomitant]
     Dosage: 10 MG

REACTIONS (2)
  - Drug ineffective [Unknown]
  - Insomnia [Unknown]
